FAERS Safety Report 5708076-6 (Version None)
Quarter: 2008Q2

REPORT INFORMATION
  Report Type: 
  Country: None (occurrence: None)
  Receive Date: 20080417
  Receipt Date: 20080407
  Transmission Date: 20081010
  Serious: Yes (Hospitalization, Other)
  Sender: FDA-Public Use
  Company Number: US-ELI_LILLY_AND_COMPANY-US200803006281

PATIENT
  Sex: Male
  Weight: 75.3 kg

DRUGS (11)
  1. GEMZAR [Suspect]
     Indication: NON-SMALL CELL LUNG CANCER STAGE I
     Dosage: UNK, UNK
     Dates: start: 20080201, end: 20080301
  2. KEFLEX [Suspect]
     Indication: CELLULITIS
     Dates: start: 20080301, end: 20080312
  3. CISPLATIN [Concomitant]
     Indication: NON-SMALL CELL LUNG CANCER STAGE I
     Dosage: UNK, UNK
     Dates: start: 20080201, end: 20080301
  4. MULTI-VITAMIN [Concomitant]
     Dosage: UNK, DAILY (1/D), 1 TAB DAILY
     Route: 048
     Dates: start: 20080101
  5. FLOMAX [Concomitant]
     Dosage: 0.4 MG, DAILY (1/D)
     Route: 048
  6. NICORETTE [Concomitant]
     Dosage: UNK, AS NEEDED, 1 CHEW
  7. HYDREA [Concomitant]
     Dosage: 1000 MG, 2/D
     Route: 048
     Dates: start: 20080317
  8. VITAMIN B-12 [Concomitant]
     Dosage: 200 UG, DAILY (1/D)
     Route: 048
  9. OXYCODONE HCL [Concomitant]
     Indication: BACK PAIN
     Dosage: UNK, 5 TO 10 MG EVERY 3 HOURS AS NEEDED, IMMEDIATE RELEASE
  10. OXYCODONE HCL ER [Concomitant]
     Indication: BACK PAIN
     Dosage: UNK, QID PRN
     Route: 048
  11. DOXYCYCLINE [Concomitant]
     Dosage: 100 MG, 2/D FOR THREE DAYS
     Route: 048
     Dates: start: 20080301

REACTIONS (18)
  - ANAEMIA OF CHRONIC DISEASE [None]
  - BLOOD POTASSIUM DECREASED [None]
  - CELLULITIS [None]
  - DIARRHOEA [None]
  - DIZZINESS [None]
  - DYSPEPSIA [None]
  - DYSPHAGIA [None]
  - DYSPNOEA [None]
  - FATIGUE [None]
  - HEADACHE [None]
  - HICCUPS [None]
  - HYDROPNEUMOTHORAX [None]
  - MUCOSAL INFLAMMATION [None]
  - NAUSEA [None]
  - NEUTROPENIA [None]
  - PERFORMANCE STATUS DECREASED [None]
  - THROMBOCYTHAEMIA [None]
  - VOMITING [None]
